FAERS Safety Report 14367988 (Version 1)
Quarter: 2018Q1

REPORT INFORMATION
  Report Type: Spontaneous
  Country: US (occurrence: US)
  Receive Date: 20180109
  Receipt Date: 20180109
  Transmission Date: 20180509
  Serious: Yes (Death, Life-Threatening, Other)
  Sender: FDA-Public Use
  Company Number: US-MYLANLABS-2018M1001624

PATIENT
  Age: 84 Year
  Sex: Male

DRUGS (1)
  1. DIPHENOXYLATE HYDROCHLORIDE AND ATROPINE SULFATE TABLETS, USP [Suspect]
     Active Substance: ATROPINE\DIPHENOXYLATE HYDROCHLORIDE
     Indication: PANCREATIC CARCINOMA
     Dosage: FOUR TIMES A DAY
     Route: 048
     Dates: start: 20170721

REACTIONS (4)
  - Off label use [Unknown]
  - Pulmonary oedema [Fatal]
  - Dyspnoea [Fatal]
  - Dyskinesia [Fatal]

NARRATIVE: CASE EVENT DATE: 20170801
